FAERS Safety Report 6795230-8 (Version None)
Quarter: 2010Q2

REPORT INFORMATION
  Report Type: 
  Country: None (occurrence: None)
  Receive Date: 20100625
  Receipt Date: 20100611
  Transmission Date: 20101027
  Serious: Yes (Other)
  Sender: FDA-Public Use
  Company Number: CA-SHIRE-SPV1-2010-01096

PATIENT

DRUGS (2)
  1. VYVANSE [Suspect]
     Indication: ATTENTION DEFICIT/HYPERACTIVITY DISORDER
     Dosage: 20 MG, 1X/DAY:QD
  2. VYVANSE [Suspect]
     Indication: ANXIETY

REACTIONS (4)
  - AFFECT LABILITY [None]
  - ANXIETY [None]
  - PARANOIA [None]
  - SUICIDAL IDEATION [None]
